FAERS Safety Report 15468918 (Version 1)
Quarter: 2018Q4

REPORT INFORMATION
  Report Type: Spontaneous
  Country: US (occurrence: US)
  Receive Date: 20181001
  Receipt Date: 20181001
  Transmission Date: 20190205
  Serious: Yes (Hospitalization)
  Sender: FDA-Public Use
  Company Number: None

PATIENT
  Age: 11 Year
  Sex: Female

DRUGS (3)
  1. PYRIDOSTIGM [Concomitant]
  2. HUMATROPE [Suspect]
     Active Substance: SOMATROPIN
     Indication: CYTOGENETIC ABNORMALITY
     Dates: start: 20180818
  3. CYPROGEPTAD [Concomitant]

REACTIONS (2)
  - Product dose omission [None]
  - Seizure [None]
